FAERS Safety Report 4566852-X (Version None)
Quarter: 2005Q1

REPORT INFORMATION
  Report Type: 
  Country: None (occurrence: None)
  Receive Date: 20050126
  Receipt Date: 20050111
  Transmission Date: 20050727
  Serious: Yes (Death, Hospitalization)
  Sender: FDA-Public Use
  Company Number: USA041285022

PATIENT
  Age: 67 Year
  Sex: Male
  Weight: 94 kg

DRUGS (3)
  1. ALIMTA [Suspect]
     Indication: NON-SMALL CELL LUNG CANCER METASTATIC
     Dosage: 800 MG
     Dates: start: 20041028, end: 20041118
  2. VITAMIN B-12 [Concomitant]
  3. FOLIC ACID [Concomitant]

REACTIONS (4)
  - ATRIAL FLUTTER [None]
  - CARDIAC ARREST [None]
  - FAILURE TO THRIVE [None]
  - HALLUCINATION, VISUAL [None]
